FAERS Safety Report 10102207 (Version 1)
Quarter: 2014Q2

REPORT INFORMATION
  Report Type: Spontaneous
  Country: US (occurrence: None)
  Receive Date: 20140423
  Receipt Date: 20140423
  Transmission Date: 20141212
  Serious: No
  Sender: FDA-Public Use
  Company Number: None

PATIENT
  Age: 66 Year
  Sex: Male

DRUGS (1)
  1. HUMIRA [Suspect]
     Indication: RHEUMATOID ARTHRITIS
     Dosage: SQ
     Route: 058
     Dates: start: 20140401, end: 20140422

REACTIONS (3)
  - Hypersensitivity [None]
  - Urticaria [None]
  - Dyspnoea [None]
